FAERS Safety Report 22298453 (Version 2)
Quarter: 2023Q2

REPORT INFORMATION
  Report Type: Spontaneous
  Country: CN (occurrence: None)
  Receive Date: 20230509
  Receipt Date: 20230510
  Transmission Date: 20230721
  Serious: Yes (Other)
  Sender: FDA-Public Use
  Company Number: CN-ROCHE-3346003

PATIENT
  Age: 75 Year
  Sex: Female

DRUGS (13)
  1. MABTHERA [Suspect]
     Active Substance: RITUXIMAB
     Indication: Non-Hodgkin^s lymphoma
     Dosage: RITUXIMAB-CVP
     Route: 065
     Dates: start: 202208
  2. MABTHERA [Suspect]
     Active Substance: RITUXIMAB
     Dosage: RITUXIMAB COMBINED WITH BENDAMUSTINE FOR 1 CYCLE
     Route: 065
     Dates: start: 20230228
  3. MABTHERA [Suspect]
     Active Substance: RITUXIMAB
     Dosage: POLA + BR FOR 1 CYCLE
     Route: 065
     Dates: start: 20230414
  4. MABTHERA [Suspect]
     Active Substance: RITUXIMAB
     Dosage: RITUXIMAB-CHOP FOR 6 CYCLES
     Route: 065
  5. MABTHERA [Suspect]
     Active Substance: RITUXIMAB
     Dosage: RITUXIMAB FOR 2 TIMES
     Route: 065
  6. POLIVY [Suspect]
     Active Substance: POLATUZUMAB VEDOTIN-PIIQ
     Indication: Diffuse large B-cell lymphoma
     Dosage: POLA + BR FOR 1 CYCLE
     Route: 065
     Dates: start: 20230414
  7. CYCLOPHOSPHAMIDE [Concomitant]
     Active Substance: CYCLOPHOSPHAMIDE
     Indication: Non-Hodgkin^s lymphoma
     Dosage: RITUXIMAB-CVP
     Dates: start: 202208
  8. DOXORUBICIN [Concomitant]
     Active Substance: DOXORUBICIN
  9. VINCRISTINE [Concomitant]
     Active Substance: VINCRISTINE
     Dosage: RITUXIMAB-CVP
     Dates: start: 202208
  10. PREDNISONE [Concomitant]
     Active Substance: PREDNISONE
     Dosage: RITUXIMAB-CVP
     Dates: start: 202208
  11. METHOTREXATE [Concomitant]
     Active Substance: METHOTREXATE
     Route: 037
  12. BENDAMUSTINE [Concomitant]
     Active Substance: BENDAMUSTINE
     Dosage: RITUXIMAB COMBINED WITH BENDAMUSTINE FOR 1 CYCLE
     Dates: start: 20230228
  13. BENDAMUSTINE [Concomitant]
     Active Substance: BENDAMUSTINE
     Dosage: POLA + BR FOR 1 CYCLE
     Dates: start: 20230414

REACTIONS (4)
  - Interstitial lung disease [Recovering/Resolving]
  - COVID-19 [Unknown]
  - Myelosuppression [Unknown]
  - Diarrhoea [Unknown]

NARRATIVE: CASE EVENT DATE: 20221218
